FAERS Safety Report 9938422 (Version 1)
Quarter: 2014Q1

REPORT INFORMATION
  Report Type: Report from Study
  Country: US (occurrence: US)
  Receive Date: 20140303
  Receipt Date: 20140303
  Transmission Date: 20141002
  Serious: No
  Sender: FDA-Public Use
  Company Number: US-ABBVIE-13P-163-1031997-00

PATIENT
  Age: 37 Year
  Sex: Female

DRUGS (12)
  1. HUMIRA [Suspect]
     Indication: PSORIASIS
     Dates: start: 20121102
  2. CYMBALTA [Concomitant]
     Indication: DEPRESSION
     Dosage: ONCE A DAY
  3. ZOLOFT [Concomitant]
     Indication: DEPRESSION
     Dosage: EVERY DAY
  4. TRAZODONE [Concomitant]
     Indication: INSOMNIA
     Dosage: AT BEDTIME
  5. AMBIEN [Concomitant]
     Indication: INSOMNIA
     Dosage: AT BEDTIME
  6. BESTROL [Concomitant]
     Indication: ANXIETY
     Dosage: 3 TIMES A DAY
  7. KLONOPIN [Concomitant]
     Indication: ANXIETY
     Dosage: 3 TIMES A DAY
  8. SAPHRIS [Concomitant]
     Indication: SCHIZOAFFECTIVE DISORDER
     Dosage: AT BEDTIME
  9. RISPERDAL [Concomitant]
     Indication: SCHIZOAFFECTIVE DISORDER
     Dosage: TWICE A DAY
  10. KEPPRA [Concomitant]
     Indication: EPILEPSY
     Dosage: TWICE DAILY
  11. VIMPAT [Concomitant]
     Indication: EPILEPSY
  12. TEGRETOL [Concomitant]
     Indication: EPILEPSY
     Dosage: TWICE DAILY

REACTIONS (6)
  - Dizziness [Not Recovered/Not Resolved]
  - Gait disturbance [Not Recovered/Not Resolved]
  - Fall [Not Recovered/Not Resolved]
  - Tendon injury [Not Recovered/Not Resolved]
  - Immobile [Not Recovered/Not Resolved]
  - Rash pruritic [Not Recovered/Not Resolved]
